FAERS Safety Report 6273131-1 (Version None)
Quarter: 2009Q3

REPORT INFORMATION
  Report Type: 
  Country: None (occurrence: None)
  Receive Date: 20090715
  Receipt Date: 20090715
  Transmission Date: 20100115
  Serious: Yes (Death)
  Sender: FDA-Public Use
  Company Number: None

PATIENT
  Age: 41 Year
  Sex: Female
  Weight: 68.0396 kg

DRUGS (4)
  1. UNKNOWN WAITING FOR DETECTIVE GUARDO ASTIN POLICE DEPT [Suspect]
     Indication: PAIN
     Dosage: PO
     Route: 048
     Dates: start: 20090401, end: 20090511
  2. UNKNOWN WAITING FOR DETECTIVE GUARDO ASTIN POLICE DEPT [Suspect]
     Indication: WOUND
     Dosage: PO
     Route: 048
     Dates: start: 20090401, end: 20090511
  3. HYDROCODONE [Concomitant]
  4. NARCO [Concomitant]

REACTIONS (2)
  - DEPRESSION [None]
  - DRUG DEPENDENCE [None]
